FAERS Safety Report 23257700 (Version 1)
Quarter: 2023Q4

REPORT INFORMATION
  Report Type: Spontaneous
  Country: US (occurrence: None)
  Receive Date: 20231129
  Receipt Date: 20231129
  Transmission Date: 20240110
  Serious: Yes (Other)
  Sender: FDA-Public Use
  Company Number: None

PATIENT
  Age: 67 Year
  Sex: Female

DRUGS (3)
  1. NUZYRA [Suspect]
     Active Substance: OMADACYCLINE
     Indication: Abscess
     Dosage: OTHER FREQUENCY : 2 TABS ON SAT/SUN;?
     Route: 048
     Dates: start: 20231125
  2. NUZYRA [Suspect]
     Active Substance: OMADACYCLINE
     Indication: Furuncle
  3. NUZYRA [Suspect]
     Active Substance: OMADACYCLINE
     Indication: Carbuncle

REACTIONS (3)
  - Abdominal discomfort [None]
  - Vomiting [None]
  - Vomiting [None]

NARRATIVE: CASE EVENT DATE: 20231127
